FAERS Safety Report 7288349-9 (Version None)
Quarter: 2011Q1

REPORT INFORMATION
  Report Type: 
  Country: None (occurrence: None)
  Receive Date: 20110211
  Receipt Date: 20110207
  Transmission Date: 20110831
  Serious: Yes (Other)
  Sender: FDA-Public Use
  Company Number: GR-PFIZER INC-2011027736

PATIENT
  Age: 4 Year
  Sex: Female

DRUGS (3)
  1. ZITHROMAX [Suspect]
     Indication: PHARYNGOTONSILLITIS
     Dosage: HALF THE BODY WEIGHT, 1X/DAY
     Route: 048
     Dates: start: 20110206, end: 20110207
  2. FLIXOTIDE ^GLAXO WELLCOME^ [Concomitant]
     Indication: PHARYNGOTONSILLITIS
     Dosage: UNK
     Route: 055
     Dates: start: 20110206
  3. AEROLIN ^GLAXO WELLCOME^ [Concomitant]
     Indication: PHARYNGOTONSILLITIS
     Dosage: UNK
     Route: 055
     Dates: start: 20110206

REACTIONS (2)
  - SOMNOLENCE [None]
  - HYPERSOMNIA [None]
